FAERS Safety Report 4901431-3 (Version None)
Quarter: 2006Q1

REPORT INFORMATION
  Report Type: 
  Country: None (occurrence: None)
  Receive Date: 20060201
  Receipt Date: 20060201
  Transmission Date: 20060701
  Serious: Yes (Hospitalization)
  Sender: FDA-Public Use
  Company Number: None

PATIENT
  Age: 56 Year
  Sex: Male
  Weight: 86.1834 kg

DRUGS (2)
  1. LEVOFLOXACIN [Suspect]
     Indication: PNEUMONIA ASPIRATION
     Dosage: 750 MG DAILY IV
     Route: 042
     Dates: start: 20060110, end: 20060115
  2. MEROPENEM 1 GM [Suspect]
     Indication: PNEUMONIA ASPIRATION
     Dosage: 1 GM Q8H IV
     Route: 042
     Dates: start: 20060109, end: 20060115

REACTIONS (1)
  - CLOSTRIDIUM COLITIS [None]
